FAERS Safety Report 16234658 (Version 1)
Quarter: 2019Q2

REPORT INFORMATION
  Report Type: Report from Study
  Country: IT (occurrence: IT)
  Receive Date: 20190424
  Receipt Date: 20190424
  Transmission Date: 20190711
  Serious: Yes (Other)
  Sender: FDA-Public Use
  Company Number: IT-MYLANLABS-2019M1037703

PATIENT
  Age: 46 Year
  Sex: Female

DRUGS (7)
  1. PREGABALIN. [Concomitant]
     Active Substance: PREGABALIN
     Dosage: 150 MILLIGRAM, QD
  2. XANAX [Suspect]
     Active Substance: ALPRAZOLAM
     Indication: ATTENTION-SEEKING BEHAVIOUR
     Dosage: UNK
     Route: 048
     Dates: start: 20181103, end: 20181103
  3. TRITTICO [Concomitant]
     Active Substance: TRAZODONE HYDROCHLORIDE
     Dosage: 150 MILLIGRAM, QD
     Route: 048
  4. QUETIAPINE. [Suspect]
     Active Substance: QUETIAPINE
     Indication: ATTENTION-SEEKING BEHAVIOUR
     Dosage: UNK
     Route: 048
     Dates: start: 20181103, end: 20181103
  5. DOSTINEX [Concomitant]
     Active Substance: CABERGOLINE
     Dosage: UNK
  6. GABAPENTIN. [Concomitant]
     Active Substance: GABAPENTIN
     Dosage: 900 MILLIGRAM, QD
  7. DIAZEPAM. [Concomitant]
     Active Substance: DIAZEPAM
     Dosage: 6 MILLIGRAM, QD

REACTIONS (4)
  - Hypokinesia [Recovering/Resolving]
  - Drug abuse [Recovering/Resolving]
  - Depressed level of consciousness [Recovering/Resolving]
  - Sopor [Recovering/Resolving]

NARRATIVE: CASE EVENT DATE: 20181103
